FAERS Safety Report 23417687 (Version 1)
Quarter: 2024Q1

REPORT INFORMATION
  Report Type: Spontaneous
  Country: JP (occurrence: JP)
  Receive Date: 20240118
  Receipt Date: 20240118
  Transmission Date: 20240410
  Serious: Yes (Hospitalization)
  Sender: FDA-Public Use
  Company Number: JP-AMGEN-JPNSP2024008456

PATIENT
  Age: 19 Year
  Sex: Male
  Weight: 45 kg

DRUGS (1)
  1. BLINCYTO [Suspect]
     Active Substance: BLINATUMOMAB
     Indication: B precursor type acute leukaemia
     Dosage: 9.28 MICROGRAM, CONTINUING 24 DIV CENTRAL VENOUS
     Route: 042
     Dates: start: 20230701, end: 20231211

REACTIONS (2)
  - Cholecystectomy [Not Recovered/Not Resolved]
  - Platelet count decreased [Not Recovered/Not Resolved]
